FAERS Safety Report 8065075-X (Version None)
Quarter: 2012Q1

REPORT INFORMATION
  Report Type: 
  Country: None (occurrence: None)
  Receive Date: 20120124
  Receipt Date: 20120120
  Transmission Date: 20120608
  Serious: No
  Sender: FDA-Public Use
  Company Number: US-PFIZER INC-2012017221

PATIENT
  Sex: Male
  Weight: 86.168 kg

DRUGS (7)
  1. FLECTOR [Suspect]
     Indication: BACK PAIN
     Dosage: UNK, AS NEEDED
     Route: 062
     Dates: start: 20111001
  2. OXYCONTIN [Concomitant]
     Dosage: 40 MG, 3X/DAY
  3. BACLOFEN [Concomitant]
     Dosage: 20 MG, 3X/DAY
  4. TOPAMAX [Concomitant]
     Dosage: 75 MG, 2X/DAY
  5. RELPAX [Concomitant]
     Dosage: 40 MG, AS NEEDED
     Route: 048
  6. FENTANYL [Concomitant]
     Dosage: 250 UG, EVERY 48 HRS
  7. ACETYLSALICYLIC ACID [Concomitant]
     Dosage: 81 MG, DAILY

REACTIONS (1)
  - DRUG INEFFECTIVE [None]
